FAERS Safety Report 25742567 (Version 1)
Quarter: 2025Q3

REPORT INFORMATION
  Report Type: Spontaneous
  Country: CN (occurrence: CN)
  Receive Date: 20250829
  Receipt Date: 20250829
  Transmission Date: 20251021
  Serious: Yes (Other)
  Sender: GE HEALTHCARE
  Company Number: None

PATIENT
  Age: 53 Year
  Sex: Male
  Weight: 72 kg

DRUGS (1)
  1. VISIPAQUE [Suspect]
     Active Substance: IODIXANOL
     Indication: Computerised tomogram
     Route: 041
     Dates: start: 20250812, end: 20250812

REACTIONS (6)
  - Dysphoria [Recovering/Resolving]
  - Ulcer [Recovering/Resolving]
  - Rash erythematous [Recovering/Resolving]
  - Rash papular [Recovering/Resolving]
  - Pruritus [Recovering/Resolving]
  - Contrast media allergy [Recovering/Resolving]

NARRATIVE: CASE EVENT DATE: 20250812
